FAERS Safety Report 7701792-6 (Version None)
Quarter: 2011Q3

REPORT INFORMATION
  Report Type: 
  Country: None (occurrence: None)
  Receive Date: 20110822
  Receipt Date: 20110817
  Transmission Date: 20111222
  Serious: Yes (Death)
  Sender: FDA-Public Use
  Company Number: DK-ASTRAZENECA-2011SE49502

PATIENT
  Age: 5927 Day
  Sex: Male
  Weight: 73 kg

DRUGS (5)
  1. ENTOCORT EC [Suspect]
     Route: 048
     Dates: start: 20030501
  2. ENTOCORT EC [Suspect]
     Indication: COLITIS ULCERATIVE
     Route: 048
     Dates: start: 20010401
  3. ENTOCORT EC [Suspect]
     Route: 048
     Dates: start: 20030601, end: 20030630
  4. IMURAN [Suspect]
     Indication: COLITIS ULCERATIVE
     Route: 048
     Dates: start: 20020101
  5. ASACOL [Suspect]
     Indication: COLITIS ULCERATIVE
     Route: 048
     Dates: start: 20020521, end: 20030701

REACTIONS (2)
  - SUDDEN DEATH [None]
  - DISSEMINATED INTRAVASCULAR COAGULATION [None]
